FAERS Safety Report 4771443-1 (Version None)
Quarter: 2005Q3

REPORT INFORMATION
  Report Type: 
  Country: None (occurrence: None)
  Receive Date: 20050915
  Receipt Date: 20050831
  Transmission Date: 20060218
  Serious: Yes (Hospitalization)
  Sender: FDA-Public Use
  Company Number: US_0508121378

PATIENT
  Age: 44 Year
  Sex: Male
  Weight: 126 kg

DRUGS (1)
  1. TADALAFIL [Suspect]
     Indication: ERECTILE DYSFUNCTION
     Dosage: 5 MG
     Dates: start: 20050810

REACTIONS (4)
  - ABDOMINAL PAIN [None]
  - BACK PAIN [None]
  - GASTROINTESTINAL OBSTRUCTION [None]
  - NAUSEA [None]
